FAERS Safety Report 17250882 (Version 3)
Quarter: 2020Q1

REPORT INFORMATION
  Report Type: Report from Study
  Country: US (occurrence: US)
  Receive Date: 20200109
  Receipt Date: 20200212
  Transmission Date: 20200409
  Serious: Yes (Death, Hospitalization)
  Sender: FDA-Public Use
  Company Number: US-BAUSCH-BL-2020-000547

PATIENT
  Age: 84 Year
  Sex: Male

DRUGS (1)
  1. XIFAXAN [Suspect]
     Active Substance: RIFAXIMIN
     Indication: PRODUCT USED FOR UNKNOWN INDICATION
     Route: 048

REACTIONS (5)
  - Anaemia [Unknown]
  - Death [Fatal]
  - Sepsis [Unknown]
  - Gastrointestinal haemorrhage [Unknown]
  - Hospice care [Unknown]

NARRATIVE: CASE EVENT DATE: 20200108
